FAERS Safety Report 15231767 (Version 1)
Quarter: 2018Q3

REPORT INFORMATION
  Report Type: Report from Study
  Country: US (occurrence: US)
  Receive Date: 20180802
  Receipt Date: 20180802
  Transmission Date: 20181010
  Serious: Yes (Other)
  Sender: FDA-Public Use
  Company Number: US-JNJFOC-20180740044

PATIENT
  Sex: Male

DRUGS (9)
  1. IMBRUVICA [Suspect]
     Active Substance: IBRUTINIB
     Indication: CHRONIC LYMPHOCYTIC LEUKAEMIA
     Route: 048
     Dates: start: 20180605
  2. VITAMIN C [Concomitant]
     Active Substance: ASCORBIC ACID
  3. TRAMADOL. [Concomitant]
     Active Substance: TRAMADOL
  4. ALPHAGAN P [Concomitant]
     Active Substance: BRIMONIDINE TARTRATE
  5. LUMIGAN [Concomitant]
     Active Substance: BIMATOPROST
  6. OFLOXACIN. [Concomitant]
     Active Substance: OFLOXACIN
  7. MULTIVITAMINS [Concomitant]
     Active Substance: VITAMINS
  8. IMBRUVICA [Suspect]
     Active Substance: IBRUTINIB
     Indication: CHRONIC LYMPHOCYTIC LEUKAEMIA
     Route: 048
     Dates: start: 20171209, end: 20180604
  9. ASPIRIN. [Concomitant]
     Active Substance: ASPIRIN

REACTIONS (1)
  - Glaucoma [Unknown]
